FAERS Safety Report 9330996 (Version 2)
Quarter: 2013Q2

REPORT INFORMATION
  Report Type: Spontaneous
  Country: BR (occurrence: BR)
  Receive Date: 20130605
  Receipt Date: 20130617
  Transmission Date: 20140414
  Serious: Yes (Other)
  Sender: FDA-Public Use
  Company Number: BR-PFIZER INC-2013169394

PATIENT
  Age: 84 Year
  Sex: Female

DRUGS (2)
  1. LYRICA [Suspect]
     Indication: LOCAL SWELLING
     Dosage: 75 MG
  2. LYRICA [Suspect]
     Indication: ANXIETY DISORDER

REACTIONS (13)
  - Off label use [Unknown]
  - Urinary retention [Not Recovered/Not Resolved]
  - Abdominal distension [Not Recovered/Not Resolved]
  - Presyncope [Unknown]
  - Dyspnoea [Unknown]
  - Urinary incontinence [Recovered/Resolved]
  - Pain [Unknown]
  - Feeling abnormal [Unknown]
  - Vomiting [Unknown]
  - Headache [Unknown]
  - Somnolence [Unknown]
  - Pain in extremity [Unknown]
  - Musculoskeletal chest pain [Not Recovered/Not Resolved]
